FAERS Safety Report 20927612 (Version 1)
Quarter: 2022Q2

REPORT INFORMATION
  Report Type: Spontaneous
  Country: US (occurrence: US)
  Receive Date: 20220607
  Receipt Date: 20220607
  Transmission Date: 20220721
  Serious: Yes (Other)
  Sender: FDA-Public Use
  Company Number: US-GILEAD-2022-0583775

PATIENT
  Age: 29 Year
  Sex: Female

DRUGS (4)
  1. VEKLURY [Suspect]
     Active Substance: REMDESIVIR
     Indication: COVID-19
     Dosage: UNK
     Route: 065
  2. METHOTREXATE [Concomitant]
     Active Substance: METHOTREXATE
  3. ADALIMUMAB [Concomitant]
     Active Substance: ADALIMUMAB
  4. OXYGEN [Concomitant]
     Active Substance: OXYGEN

REACTIONS (1)
  - Vomiting [Recovered/Resolved]
